FAERS Safety Report 6776429-3 (Version None)
Quarter: 2010Q2

REPORT INFORMATION
  Report Type: 
  Country: None (occurrence: None)
  Receive Date: 20100615
  Receipt Date: 20100601
  Transmission Date: 20101027
  Serious: Yes (Hospitalization)
  Sender: FDA-Public Use
  Company Number: 607874

PATIENT
  Age: 52 Year
  Sex: Male

DRUGS (2)
  1. HEPARIN SODIUM [Suspect]
     Indication: SURGERY
     Dosage: SEE IMAGE
  2. HEPARIN-FRACTION [Suspect]
     Indication: PROPHYLAXIS

REACTIONS (2)
  - HEPARIN-INDUCED THROMBOCYTOPENIA [None]
  - SURGICAL FAILURE [None]
